FAERS Safety Report 5684174-0 (Version None)
Quarter: 2008Q1

REPORT INFORMATION
  Report Type: 
  Country: None (occurrence: None)
  Receive Date: 20080328
  Receipt Date: 20070919
  Transmission Date: 20080703
  Serious: Yes (Hospitalization)
  Sender: FDA-Public Use
  Company Number: US-AMGEN-US244000

PATIENT
  Sex: Female
  Weight: 74.9 kg

DRUGS (3)
  1. NEULASTA [Suspect]
     Indication: CHEMOTHERAPY
     Route: 065
  2. ADRIAMYCIN PFS [Concomitant]
     Route: 065
  3. CYTOXAN [Concomitant]
     Route: 065

REACTIONS (1)
  - BONE PAIN [None]
